FAERS Safety Report 19955124 (Version 1)
Quarter: 2021Q4

REPORT INFORMATION
  Report Type: Spontaneous
  Country: HR (occurrence: HR)
  Receive Date: 20211014
  Receipt Date: 20211014
  Transmission Date: 20220303
  Serious: Yes (Other)
  Sender: FDA-Public Use
  Company Number: HR-PFIZER INC-202101316362

PATIENT
  Sex: Male

DRUGS (2)
  1. GEMTUZUMAB OZOGAMICIN [Suspect]
     Active Substance: GEMTUZUMAB OZOGAMICIN
     Indication: Acute myeloid leukaemia
     Dosage: UNK
     Dates: start: 20210304
  2. CYTARABINE [Suspect]
     Active Substance: CYTARABINE
     Dosage: IDAC (INTERMEDIATE-DOSE CYTARABINE)
     Dates: start: 20210304

REACTIONS (5)
  - Sepsis [Unknown]
  - Diarrhoea haemorrhagic [Unknown]
  - Superficial vein thrombosis [Recovered/Resolved]
  - Pyrexia [Recovered/Resolved]
  - Back pain [Recovered/Resolved]

NARRATIVE: CASE EVENT DATE: 20210101
